FAERS Safety Report 7064408-0 (Version None)
Quarter: 2010Q4

REPORT INFORMATION
  Report Type: 
  Country: None (occurrence: None)
  Receive Date: 20101027
  Receipt Date: 20101019
  Transmission Date: 20110411
  Serious: Yes (Life-Threatening, Other)
  Sender: FDA-Public Use
  Company Number: US-JNJFOC-20100209099

PATIENT
  Sex: Male
  Weight: 100.25 kg

DRUGS (2)
  1. INFLIXIMAB [Suspect]
     Indication: PSORIASIS
     Route: 042
  2. ENBREL [Concomitant]
     Indication: PSORIASIS

REACTIONS (2)
  - LUNG NEOPLASM [None]
  - TONSIL CANCER [None]
